FAERS Safety Report 25060756 (Version 1)
Quarter: 2025Q1

REPORT INFORMATION
  Report Type: Spontaneous
  Country: US (occurrence: US)
  Receive Date: 20250310
  Receipt Date: 20250310
  Transmission Date: 20250409
  Serious: No
  Sender: ELI LILLY AND COMPANY
  Company Number: US-ELI_LILLY_AND_COMPANY-US202503003004

PATIENT
  Age: 60 Year
  Sex: Female

DRUGS (4)
  1. HUMULIN R U-500 [Suspect]
     Active Substance: INSULIN HUMAN
     Indication: Product used for unknown indication
     Dosage: 70 U, UNKNOWN (50-70 UNITS)
     Route: 065
  2. HUMULIN R U-500 [Suspect]
     Active Substance: INSULIN HUMAN
     Dosage: 150 U, UNKNOWN (UP TO 150 UNITS)
     Route: 065
  3. MOUNJARO [Concomitant]
     Active Substance: TIRZEPATIDE
     Indication: Product used for unknown indication
     Route: 065
  4. MOUNJARO [Concomitant]
     Active Substance: TIRZEPATIDE
     Route: 065

REACTIONS (3)
  - Malaise [Unknown]
  - Blood glucose increased [Unknown]
  - Off label use [Unknown]
